FAERS Safety Report 5126252-0 (Version None)
Quarter: 2006Q4

REPORT INFORMATION
  Report Type: 
  Country: None (occurrence: None)
  Receive Date: 20061012
  Receipt Date: 20060925
  Transmission Date: 20070319
  Serious: Yes (Life-Threatening)
  Sender: FDA-Public Use
  Company Number: FR-ABBOTT-06P-056-0344844-00

PATIENT
  Sex: Male
  Weight: 70 kg

DRUGS (1)
  1. TARKA [Suspect]
     Indication: HYPERTENSION
     Route: 048
     Dates: start: 20040601, end: 20060801

REACTIONS (1)
  - CYTOLYTIC HEPATITIS [None]
